FAERS Safety Report 17155813 (Version 2)
Quarter: 2019Q4

REPORT INFORMATION
  Report Type: Spontaneous
  Country: ES (occurrence: ES)
  Receive Date: 20191215
  Receipt Date: 20191226
  Transmission Date: 20200122
  Serious: Yes (Other)
  Sender: FDA-Public Use
  Company Number: ES-SA-2019SA341852

PATIENT
  Sex: Female

DRUGS (1)
  1. AFLIBERCEPT [Suspect]
     Active Substance: AFLIBERCEPT
     Dosage: UNK UNK, UNK
     Route: 031
     Dates: start: 20191022

REACTIONS (3)
  - Foreign body in eye [Unknown]
  - Visual impairment [Unknown]
  - Ocular procedural complication [Unknown]

NARRATIVE: CASE EVENT DATE: 20191022
